FAERS Safety Report 23776390 (Version 2)
Quarter: 2024Q2

REPORT INFORMATION
  Report Type: Report from Study
  Country: IT (occurrence: IT)
  Receive Date: 20240424
  Receipt Date: 20240509
  Transmission Date: 20240715
  Serious: No
  Sender: FDA-Public Use
  Company Number: IT-SA-2024SA015226

PATIENT
  Age: 4 Year
  Sex: Female

DRUGS (1)
  1. ALGLUCOSIDASE ALFA [Suspect]
     Active Substance: ALGLUCOSIDASE ALFA
     Indication: Glycogen storage disease type II
     Dosage: 12 DF, QW (12 VIALS EVERY 7 DAYS)
     Route: 041
     Dates: start: 20230307

REACTIONS (3)
  - Body temperature increased [Recovered/Resolved]
  - Vomiting [Recovered/Resolved]
  - Off label use [Unknown]

NARRATIVE: CASE EVENT DATE: 20230307
